FAERS Safety Report 5315063-9 (Version None)
Quarter: 2007Q2

REPORT INFORMATION
  Report Type: 
  Country: None (occurrence: None)
  Receive Date: 20070426
  Receipt Date: 20070413
  Transmission Date: 20071010
  Serious: Yes (Life-Threatening, Hospitalization)
  Sender: FDA-Public Use
  Company Number: GXKR2007US03475

PATIENT
  Age: 52 Year
  Sex: Female

DRUGS (8)
  1. METHADONE HCL [Suspect]
     Dosage: 145 MG, QD
  2. COCAINE(COCAINE) [Suspect]
  3. BENZODIAZEPINES (NO INGREDIENTS/SUBSTANCES) [Suspect]
  4. ACYCLOVIR [Concomitant]
  5. ZIDOVUDINE [Concomitant]
  6. AMOXICILLIN [Concomitant]
  7. RANITIDINE [Concomitant]
  8. ALPRAZOLAM [Concomitant]

REACTIONS (23)
  - ALPHA HAEMOLYTIC STREPTOCOCCAL INFECTION [None]
  - BLOOD CULTURE POSITIVE [None]
  - BLOOD MAGNESIUM DECREASED [None]
  - BLOOD POTASSIUM DECREASED [None]
  - CARDIAC ARREST [None]
  - DIZZINESS [None]
  - DRUG SCREEN POSITIVE [None]
  - ELECTROLYTE IMBALANCE [None]
  - EXTRASYSTOLES [None]
  - HAEMATOCRIT DECREASED [None]
  - HAEMOGLOBIN DECREASED [None]
  - HEADACHE [None]
  - MITRAL VALVE INCOMPETENCE [None]
  - NAUSEA [None]
  - PULSE ABSENT [None]
  - PYREXIA [None]
  - RESPIRATORY RATE DECREASED [None]
  - RESPIRATORY RATE INCREASED [None]
  - SYNCOPE [None]
  - TORSADE DE POINTES [None]
  - TRICUSPID VALVE INCOMPETENCE [None]
  - VENTRICULAR HYPOKINESIA [None]
  - VENTRICULAR TACHYCARDIA [None]
